FAERS Safety Report 23798552 (Version 1)
Quarter: 2024Q2

REPORT INFORMATION
  Report Type: Spontaneous
  Country: US (occurrence: None)
  Receive Date: 20240426
  Receipt Date: 20240426
  Transmission Date: 20240715
  Serious: Yes (Hospitalization)
  Sender: FDA-Public Use
  Company Number: None

PATIENT
  Age: 41 Year
  Sex: Female
  Weight: 74.25 kg

DRUGS (1)
  1. UDENYCA [Suspect]
     Active Substance: PEGFILGRASTIM-CBQV
     Indication: Breast cancer
     Dates: start: 20240410

REACTIONS (10)
  - Back pain [None]
  - Chest discomfort [None]
  - Dyspnoea [None]
  - Abdominal pain [None]
  - Hyperhidrosis [None]
  - Loss of consciousness [None]
  - Blood pressure increased [None]
  - White blood cell count increased [None]
  - Lethargy [None]
  - Incoherent [None]

NARRATIVE: CASE EVENT DATE: 20240410
